FAERS Safety Report 4642584-4 (Version None)
Quarter: 2005Q2

REPORT INFORMATION
  Report Type: 
  Country: None (occurrence: None)
  Receive Date: 20050420
  Receipt Date: 20050413
  Transmission Date: 20051028
  Serious: Yes (Hospitalization)
  Sender: FDA-Public Use
  Company Number: 21121

PATIENT
  Age: 7 Year
  Sex: Female

DRUGS (2)
  1. CYCLOPENTOLATE HCL [Suspect]
     Indication: MYDRIASIS
     Dosage: 3 GTT ONCE OPHT
     Route: 047
     Dates: start: 20010904, end: 20010904
  2. CYCLOPENTOLATE HCL [Suspect]
     Indication: MYDRIASIS
     Dosage: 3 GTTS ONCE OPHT
     Route: 047
     Dates: start: 20010904, end: 20010904

REACTIONS (4)
  - APHASIA [None]
  - DYSPHAGIA [None]
  - FACIAL PALSY [None]
  - VIRAL INFECTION [None]
